FAERS Safety Report 15038110 (Version 1)
Quarter: 2018Q2

REPORT INFORMATION
  Report Type: Spontaneous
  Country: US (occurrence: US)
  Receive Date: 20180620
  Receipt Date: 20180620
  Transmission Date: 20180711
  Serious: No
  Sender: FDA-Public Use
  Company Number: US-IGSA-SR10005478

PATIENT
  Age: 22 Year
  Sex: Female
  Weight: 52.15 kg

DRUGS (4)
  1. HYPERRAB S/D [Suspect]
     Active Substance: HUMAN RABIES VIRUS IMMUNE GLOBULIN
     Indication: RABIES IMMUNISATION
     Dosage: UNK
     Route: 030
     Dates: start: 20171020, end: 20171020
  2. RABIES VACCINE [Suspect]
     Active Substance: RABIES VACCINE
     Indication: ANIMAL SCRATCH
  3. HYPERRAB S/D [Suspect]
     Active Substance: HUMAN RABIES VIRUS IMMUNE GLOBULIN
     Indication: ANIMAL SCRATCH
  4. RABIES VACCINE [Suspect]
     Active Substance: RABIES VACCINE
     Indication: RABIES IMMUNISATION

REACTIONS (4)
  - Hypoaesthesia [Recovering/Resolving]
  - Chills [Recovering/Resolving]
  - Paraesthesia [Recovering/Resolving]
  - Urticaria [Recovering/Resolving]

NARRATIVE: CASE EVENT DATE: 20171002
